FAERS Safety Report 19792839 (Version 1)
Quarter: 2021Q3

REPORT INFORMATION
  Report Type: Spontaneous
  Country: GB (occurrence: GB)
  Receive Date: 20210906
  Receipt Date: 20210906
  Transmission Date: 20211014
  Serious: Yes (Other)
  Sender: FDA-Public Use
  Company Number: GB-PFIZER INC-202101092744

PATIENT
  Age: 40 Year
  Sex: Female
  Weight: 50 kg

DRUGS (1)
  1. CIPROFLOXACIN HCL [Suspect]
     Active Substance: CIPROFLOXACIN HYDROCHLORIDE
     Indication: URINARY TRACT INFECTION
     Dosage: 500 MG X2
     Route: 048
     Dates: start: 20210717, end: 20210720

REACTIONS (5)
  - Limb discomfort [Not Recovered/Not Resolved]
  - Pruritus [Recovered/Resolved]
  - Paraesthesia [Recovered/Resolved with Sequelae]
  - Formication [Unknown]
  - Anxiety [Not Recovered/Not Resolved]

NARRATIVE: CASE EVENT DATE: 20210718
